FAERS Safety Report 5499548-0 (Version None)
Quarter: 2007Q4

REPORT INFORMATION
  Report Type: 
  Country: None (occurrence: None)
  Receive Date: 20071026
  Receipt Date: 20071012
  Transmission Date: 20080405
  Serious: Yes (Death, Hospitalization)
  Sender: FDA-Public Use
  Company Number: US-SHR-US-2007-036383

PATIENT
  Age: 59 Year
  Sex: Female
  Weight: 66.213 kg

DRUGS (4)
  1. BETASERON [Suspect]
     Indication: RELAPSING-REMITTING MULTIPLE SCLEROSIS
     Dosage: 8 MIU, EVERY 2D
     Route: 058
     Dates: start: 20070108
  2. SOLU-MEDROL [Concomitant]
     Dosage: HIGH DOSE
     Dates: start: 20070824
  3. COPAXONE [Concomitant]
     Dates: start: 20030301, end: 20070101
  4. METHOTREXATE [Concomitant]
     Indication: RHEUMATOID ARTHRITIS
     Dosage: 1.5 MG/D, UNK
     Route: 048

REACTIONS (3)
  - LISTERIA SEPSIS [None]
  - ORGAN FAILURE [None]
  - PNEUMONIA BACTERIAL [None]
